FAERS Safety Report 8256480-7 (Version None)
Quarter: 2012Q2

REPORT INFORMATION
  Report Type: 
  Country: None (occurrence: None)
  Receive Date: 20120403
  Receipt Date: 20120207
  Transmission Date: 20120825
  Serious: Yes (Other)
  Sender: FDA-Public Use
  Company Number: CHPA2012US005771

PATIENT
  Sex: Male

DRUGS (1)
  1. EXCEDRIN EXTRA STRENGTH TABLETS [Suspect]
     Dosage: UNK , UNK
     Route: 048

REACTIONS (4)
  - VERTIGO [None]
  - VOMITING [None]
  - COGNITIVE DISORDER [None]
  - DIZZINESS [None]
